FAERS Safety Report 5571349-4 (Version None)
Quarter: 2007Q4

REPORT INFORMATION
  Report Type: 
  Country: None (occurrence: None)
  Receive Date: 20071221
  Receipt Date: 20070808
  Transmission Date: 20080405
  Serious: No
  Sender: FDA-Public Use
  Company Number: A0668961A

PATIENT
  Age: 64 Year
  Sex: Female

DRUGS (8)
  1. FLONASE [Suspect]
     Dosage: 50MCG PER DAY
     Route: 045
     Dates: start: 19990101, end: 20070601
  2. ADVAIR DISKUS 100/50 [Concomitant]
  3. VITAMIN E [Concomitant]
  4. ACTONEL [Concomitant]
  5. CALCIUM [Concomitant]
  6. VALIUM [Concomitant]
  7. RESTORIL [Concomitant]
  8. PROTONIX [Concomitant]

REACTIONS (1)
  - OESOPHAGEAL CANDIDIASIS [None]
